FAERS Safety Report 13895493 (Version 1)
Quarter: 2017Q3

REPORT INFORMATION
  Report Type: Spontaneous
  Country: US (occurrence: None)
  Receive Date: 20170817
  Receipt Date: 20170817
  Transmission Date: 20171127
  Serious: Yes (Death)
  Sender: FDA-Public Use
  Company Number: None

PATIENT
  Age: 66 Year
  Sex: Male

DRUGS (20)
  1. PROMETHAZINE [Concomitant]
     Active Substance: PROMETHAZINE\PROMETHAZINE HYDROCHLORIDE
  2. METOPROLOL. [Concomitant]
     Active Substance: METOPROLOL
  3. LORAZEPAM. [Concomitant]
     Active Substance: LORAZEPAM
  4. HYOSCYAMINE. [Concomitant]
     Active Substance: HYOSCYAMINE
  5. HALOPERIDOL. [Concomitant]
     Active Substance: HALOPERIDOL
  6. ZOLPIDEM [Concomitant]
     Active Substance: ZOLPIDEM\ZOLPIDEM TARTRATE
  7. FLUCONAZOLE. [Concomitant]
     Active Substance: FLUCONAZOLE
  8. LUNESTA [Concomitant]
     Active Substance: ESZOPICLONE
  9. FE [Concomitant]
     Active Substance: IRON
  10. PANTPORAZOLE [Concomitant]
  11. ENALAPRIL [Concomitant]
     Active Substance: ENALAPRIL
  12. ELIQUIS [Concomitant]
     Active Substance: APIXABAN
  13. LONSURF [Suspect]
     Active Substance: TIPIRACIL HYDROCHLORIDE\TRIFLURIDINE
     Dates: end: 20170815
  14. NYSTATIN. [Concomitant]
     Active Substance: NYSTATIN
  15. CITALOPRAM [Concomitant]
     Active Substance: CITALOPRAM HYDROBROMIDE
  16. OXYCODONE [Concomitant]
     Active Substance: OXYCODONE
  17. OLANZAPINE. [Concomitant]
     Active Substance: OLANZAPINE
  18. CLONIDINE. [Concomitant]
     Active Substance: CLONIDINE
  19. PROCHLORPERAZINE. [Concomitant]
     Active Substance: PROCHLORPERAZINE
  20. CIPRO [Concomitant]
     Active Substance: CIPROFLOXACIN HYDROCHLORIDE

REACTIONS (1)
  - Death [None]

NARRATIVE: CASE EVENT DATE: 20170815
